FAERS Safety Report 18179440 (Version 4)
Quarter: 2020Q4

REPORT INFORMATION
  Report Type: Spontaneous
  Country: US (occurrence: US)
  Receive Date: 20200820
  Receipt Date: 20201119
  Transmission Date: 20210113
  Serious: Yes (Other)
  Sender: FDA-Public Use
  Company Number: US-GILEAD-2020-0489859

PATIENT
  Age: 44 Year
  Sex: Male
  Weight: 115 kg

DRUGS (22)
  1. VIREAD [Suspect]
     Active Substance: TENOFOVIR DISOPROXIL FUMARATE
     Indication: HIV INFECTION
     Dosage: UNK
     Route: 065
     Dates: start: 200403, end: 200409
  2. SUSTIVA [Concomitant]
     Active Substance: EFAVIRENZ
  3. ZETIA [Concomitant]
     Active Substance: EZETIMIBE
  4. EPIVIR [Concomitant]
     Active Substance: LAMIVUDINE
  5. FUZEON [Concomitant]
     Active Substance: ENFUVIRTIDE
  6. PROPRANOLOL [Concomitant]
     Active Substance: PROPRANOLOL HYDROCHLORIDE
  7. OMEPRAZOLE. [Concomitant]
     Active Substance: OMEPRAZOLE
  8. TRUVADA [Suspect]
     Active Substance: EMTRICITABINE\TENOFOVIR DISOPROXIL FUMARATE
     Indication: HIV INFECTION
     Dosage: UNK
     Route: 065
     Dates: start: 20050413, end: 201108
  9. INVIRASE [Concomitant]
     Active Substance: SAQUINAVIR MESYLATE
  10. LOSARTAN. [Concomitant]
     Active Substance: LOSARTAN
  11. ATORVASTATIN [Concomitant]
     Active Substance: ATORVASTATIN
  12. TRUVADA [Suspect]
     Active Substance: EMTRICITABINE\TENOFOVIR DISOPROXIL FUMARATE
     Dosage: UNK
     Route: 065
     Dates: start: 20150304, end: 201604
  13. NORVIR [Concomitant]
     Active Substance: RITONAVIR
  14. DARUNAVIR ETHANOLATE. [Concomitant]
     Active Substance: DARUNAVIR ETHANOLATE
  15. VITAMIN D 2000 [Concomitant]
     Active Substance: VITAMIN D NOS
  16. ISENTRESS [Concomitant]
     Active Substance: RALTEGRAVIR POTASSIUM
  17. VIDEX [Concomitant]
     Active Substance: DIDANOSINE
  18. ENOXAPARIN [Concomitant]
     Active Substance: ENOXAPARIN
  19. DESCOVY [Concomitant]
     Active Substance: EMTRICITABINE\TENOFOVIR ALAFENAMIDE FUMARATE
  20. EMTRIVA [Concomitant]
     Active Substance: EMTRICITABINE
  21. KALETRA [Concomitant]
     Active Substance: LOPINAVIR\RITONAVIR
  22. OXYCODONE [Concomitant]
     Active Substance: OXYCODONE

REACTIONS (10)
  - Anhedonia [Unknown]
  - Chronic kidney disease [Not Recovered/Not Resolved]
  - Acute kidney injury [Recovered/Resolved]
  - Pain [Unknown]
  - Drug resistance [Unknown]
  - Osteopenia [Not Recovered/Not Resolved]
  - Anxiety [Not Recovered/Not Resolved]
  - Emotional distress [Unknown]
  - Blood creatinine increased [Unknown]
  - Economic problem [Unknown]

NARRATIVE: CASE EVENT DATE: 20091216
